FAERS Safety Report 9168886 (Version 1)
Quarter: 2013Q1

REPORT INFORMATION
  Report Type: Spontaneous
  Country: US (occurrence: None)
  Receive Date: 20130308
  Receipt Date: 20130308
  Transmission Date: 20140127
  Serious: Yes (Other)
  Sender: FDA-Public Use
  Company Number: JPI-P-030153

PATIENT
  Age: 59 Year
  Sex: Female

DRUGS (1)
  1. XYREM (500 MILLIGRAM/MILLILITERS, SOLUTION)(SODIUM OXYBATE) [Suspect]
     Indication: NARCOLEPSY
     Dosage: (4.5 GM, 2 IN 1 D)
     Route: 048
     Dates: start: 20120727, end: 2012

REACTIONS (1)
  - Systemic lupus erythematosus [None]
